FAERS Safety Report 4789417-3 (Version None)
Quarter: 2005Q4

REPORT INFORMATION
  Report Type: 
  Country: None (occurrence: None)
  Receive Date: 20051004
  Receipt Date: 20051004
  Transmission Date: 20060501
  Serious: Yes (Hospitalization)
  Sender: FDA-Public Use
  Company Number: None

PATIENT
  Sex: Male
  Weight: 99 kg

DRUGS (11)
  1. OXALIPLATIN [Suspect]
     Indication: RECTAL CANCER
     Dosage: IV
     Route: 042
     Dates: start: 20050516
  2. ENALAPRIL [Concomitant]
  3. DILTIAZEM [Concomitant]
  4. SIMVASTATIN [Concomitant]
  5. NIACIN [Concomitant]
  6. FISH OILS [Concomitant]
  7. WARFARIN SODIUM [Concomitant]
  8. LOPERAMIDE [Concomitant]
  9. DIPHENHYDRAMINE HCL [Concomitant]
  10. HYDROCORTISONE [Concomitant]
  11. FLUOROURACIL [Concomitant]

REACTIONS (5)
  - DIARRHOEA [None]
  - NAUSEA [None]
  - PYREXIA [None]
  - RASH GENERALISED [None]
  - VOMITING [None]
